FAERS Safety Report 9050267 (Version 1)
Quarter: 2013Q1

REPORT INFORMATION
  Report Type: Report from Study
  Country: US (occurrence: US)
  Receive Date: 20130204
  Receipt Date: 20130204
  Transmission Date: 20140127
  Serious: Yes (Death)
  Sender: FDA-Public Use
  Company Number: US-ABBOTT-13P-163-1043893-00

PATIENT
  Age: 88 None
  Sex: Female

DRUGS (1)
  1. HUMIRA [Suspect]
     Route: 058
     Dates: start: 20080221

REACTIONS (1)
  - Death [Fatal]
